FAERS Safety Report 8876642 (Version 2)
Quarter: 2013Q1

REPORT INFORMATION
  Report Type: Spontaneous
  Country: PL (occurrence: PL)
  Receive Date: 20121029
  Receipt Date: 20130115
  Transmission Date: 20140127
  Serious: Yes (Death)
  Sender: FDA-Public Use
  Company Number: PHHY2012PL096970

PATIENT
  Sex: Female

DRUGS (1)
  1. OSPEN [Suspect]

REACTIONS (2)
  - Death [Fatal]
  - Medication error [Unknown]
